FAERS Safety Report 6586683-9 (Version None)
Quarter: 2010Q1

REPORT INFORMATION
  Report Type: 
  Country: None (occurrence: None)
  Receive Date: 20100217
  Receipt Date: 20090706
  Transmission Date: 20100710
  Serious: No
  Sender: FDA-Public Use
  Company Number: US-ALLERGAN-0909384US

PATIENT
  Age: 69 Year
  Sex: Female

DRUGS (3)
  1. BOTOX COSMETIC [Suspect]
     Indication: SKIN WRINKLING
     Dosage: UNK, SINGLE
     Route: 030
     Dates: start: 20090616, end: 20090616
  2. JUVEDERM ULTRA PLUS [Suspect]
     Indication: SKIN WRINKLING
  3. RADIESSE [Concomitant]
     Dosage: UNK, SINGLE
     Dates: start: 20090616, end: 20090616

REACTIONS (3)
  - FACIAL PAIN [None]
  - FURUNCLE [None]
  - RASH [None]
